FAERS Safety Report 8523589-X (Version None)
Quarter: 2012Q3

REPORT INFORMATION
  Report Type: 
  Country: None (occurrence: None)
  Receive Date: 20120720
  Receipt Date: 20101117
  Transmission Date: 20120928
  Serious: Yes (Hospitalization)
  Sender: FDA-Public Use
  Company Number: US-BAYER-201017004NA

PATIENT
  Age: 29 Year
  Sex: Female
  Weight: 79.545 kg

DRUGS (4)
  1. YAZ [Suspect]
     Indication: CONTRACEPTION
     Route: 048
     Dates: start: 20020101, end: 20080401
  2. YAZ [Suspect]
     Indication: PREMENSTRUAL SYNDROME
  3. YASMIN [Suspect]
     Indication: PREMENSTRUAL SYNDROME
  4. YASMIN [Suspect]
     Indication: CONTRACEPTION
     Route: 048
     Dates: start: 20020101, end: 20080401

REACTIONS (6)
  - DEEP VEIN THROMBOSIS [None]
  - GENITAL HAEMORRHAGE [None]
  - MENORRHAGIA [None]
  - THROMBOSIS [None]
  - GALLBLADDER DISORDER [None]
  - HEADACHE [None]
